FAERS Safety Report 7605949-4 (Version None)
Quarter: 2011Q3

REPORT INFORMATION
  Report Type: 
  Country: None (occurrence: None)
  Receive Date: 20110713
  Receipt Date: 20110629
  Transmission Date: 20111222
  Serious: Yes (Other)
  Sender: FDA-Public Use
  Company Number: PHHY2011BR58903

PATIENT
  Sex: Male

DRUGS (2)
  1. DIOVAN [Suspect]
     Dosage: 1 DF, EVERY 12 HOURS (160 MG)
     Route: 048
     Dates: start: 20110629
  2. DIOVAN [Suspect]
     Indication: HYPERTENSION
     Dosage: 1 DF, A DAY (160 MG)
     Route: 048

REACTIONS (3)
  - RECTAL NEOPLASM [None]
  - PELVIC NEOPLASM [None]
  - HYPERTENSION [None]
